FAERS Safety Report 8598582-1 (Version None)
Quarter: 2012Q3

REPORT INFORMATION
  Report Type: 
  Country: None (occurrence: None)
  Receive Date: 20120816
  Receipt Date: 20120808
  Transmission Date: 20120928
  Serious: Yes (Hospitalization, Other)
  Sender: FDA-Public Use
  Company Number: FR-PFIZER INC-2012198334

PATIENT
  Age: 71 Year
  Sex: Female

DRUGS (17)
  1. OMEPRAZOLE [Concomitant]
     Dosage: UNK
  2. FOLIC ACID [Concomitant]
     Dosage: UNK
  3. PREDNISONE [Concomitant]
     Dosage: UNK
  4. METHOTREXATE SODIUM [Concomitant]
     Dosage: UNK
  5. ARTELAC [Concomitant]
     Dosage: UNK
  6. ARCOXIA [Interacting]
     Indication: PRODUCT USED FOR UNKNOWN INDICATION
     Dosage: UNK
     Route: 048
     Dates: end: 20100805
  7. ACETAMINOPHEN [Concomitant]
     Dosage: UNK
  8. ART 50 [Concomitant]
     Dosage: UNK
  9. AMITRIPTYLINE HYDROCHLORIDE [Concomitant]
     Dosage: UNK
  10. FUCITHALMIC [Concomitant]
     Dosage: UNK
  11. AMARYL [Concomitant]
     Dosage: UNK
  12. OXAZEPAM [Concomitant]
     Dosage: UNK
  13. LITHIUM CARBONATE [Interacting]
     Indication: PRODUCT USED FOR UNKNOWN INDICATION
     Dosage: 625 MG, DAILY
     Route: 048
     Dates: end: 20100805
  14. CETIRIZINE [Concomitant]
     Dosage: UNK
  15. ZOLPIDEM TARTRATE [Concomitant]
     Dosage: UNK
  16. RAMIPRIL [Suspect]
     Dosage: UNK
     Route: 048
     Dates: end: 20100805
  17. NOCTAMIDE [Concomitant]
     Dosage: UNK

REACTIONS (11)
  - DRUG INTERACTION [None]
  - OVERDOSE [None]
  - ELECTROCARDIOGRAM REPOLARISATION ABNORMALITY [None]
  - SPEECH DISORDER [None]
  - COGNITIVE DISORDER [None]
  - ANTIPSYCHOTIC DRUG LEVEL INCREASED [None]
  - ATRIAL FIBRILLATION [None]
  - TREMOR [None]
  - DIARRHOEA [None]
  - RENAL FAILURE ACUTE [None]
  - DYSARTHRIA [None]
